FAERS Safety Report 13652713 (Version 1)
Quarter: 2017Q2

REPORT INFORMATION
  Report Type: Spontaneous
  Country: US (occurrence: US)
  Receive Date: 20170614
  Receipt Date: 20170614
  Transmission Date: 20170830
  Serious: No
  Sender: FDA-Public Use
  Company Number: US-ROCHE-1420829

PATIENT
  Sex: Male

DRUGS (1)
  1. XELODA [Suspect]
     Active Substance: CAPECITABINE
     Indication: BLADDER CANCER
     Dosage: 7 DAYS ON , 7 DAYS OFF
     Route: 048

REACTIONS (13)
  - Urticaria [Unknown]
  - Hand-foot-and-mouth disease [Unknown]
  - Hypophagia [Unknown]
  - Malaise [Unknown]
  - Blister [Unknown]
  - Hyperhidrosis [Unknown]
  - Drug ineffective [Unknown]
  - Discomfort [Unknown]
  - Dysphagia [Unknown]
  - Mouth swelling [Unknown]
  - Abasia [Unknown]
  - Ulcer [Unknown]
  - Metastases to liver [Unknown]
